FAERS Safety Report 12445346 (Version 2)
Quarter: 2016Q2

REPORT INFORMATION
  Report Type: Spontaneous
  Country: KR (occurrence: KR)
  Receive Date: 20160607
  Receipt Date: 20160609
  Transmission Date: 20160815
  Serious: Yes (Death, Hospitalization, Other)
  Sender: FDA-Public Use
  Company Number: KR-AMGEN-KORSP2016072251

PATIENT
  Age: 74 Year
  Sex: Female

DRUGS (8)
  1. THALIDOMIDE [Concomitant]
     Active Substance: THALIDOMIDE
     Dosage: UNK
  2. KYPROLIS [Suspect]
     Active Substance: CARFILZOMIB
     Dosage: 20 MG/M2, UNK CYCLE 2
     Route: 042
     Dates: start: 20130409
  3. LENALIDOMIDE [Concomitant]
     Active Substance: LENALIDOMIDE
     Dosage: UNK
  4. BORTEZOMIB [Concomitant]
     Active Substance: BORTEZOMIB
     Dosage: UNK
  5. KYPROLIS [Suspect]
     Active Substance: CARFILZOMIB
     Dosage: 27 MG/M2  D 1-2, 8-9, 28-29
     Route: 042
     Dates: start: 20130520
  6. DEXAMETHASONE. [Concomitant]
     Active Substance: DEXAMETHASONE
     Dosage: 4 MG
     Route: 042
  7. DEXAMETHASONE. [Concomitant]
     Active Substance: DEXAMETHASONE
     Dosage: 4 MG, UNK
     Route: 048
  8. KYPROLIS [Suspect]
     Active Substance: CARFILZOMIB
     Indication: PLASMA CELL MYELOMA
     Dosage: 20 MG/M2 D 1-2, 8-9, 15-16 CYCLE 1
     Route: 042
     Dates: start: 20130305

REACTIONS (14)
  - Respiratory failure [Unknown]
  - Atrial fibrillation [Unknown]
  - Infusion site reaction [Unknown]
  - Diastolic dysfunction [Unknown]
  - Pulmonary congestion [Unknown]
  - Atrial hypertrophy [Unknown]
  - Death [Fatal]
  - Tricuspid valve incompetence [Unknown]
  - Dyspnoea [Recovering/Resolving]
  - Pulmonary hypertension [Unknown]
  - Right ventricular systolic pressure increased [Unknown]
  - Mitral valve incompetence [Unknown]
  - Left ventricular end-diastolic pressure increased [Unknown]
  - Sepsis [Unknown]

NARRATIVE: CASE EVENT DATE: 2013
